FAERS Safety Report 13196399 (Version 1)
Quarter: 2017Q1

REPORT INFORMATION
  Report Type: Spontaneous
  Country: CA (occurrence: CA)
  Receive Date: 20170208
  Receipt Date: 20170208
  Transmission Date: 20170428
  Serious: Yes (Death, Hospitalization)
  Sender: FDA-Public Use
  Company Number: CA-ORION CORPORATION ORION PHARMA-TREX2017-0433

PATIENT
  Age: 89 Year
  Sex: Male

DRUGS (1)
  1. METHOTREXATE (TRADE NAME UNKNOWN) [Suspect]
     Active Substance: METHOTREXATE
     Indication: ARTHRITIS
     Dosage: STRENGTH: 2.5 MG (3 PILLS)
     Route: 048
     Dates: start: 20140718, end: 20140731

REACTIONS (6)
  - Oropharyngeal pain [Unknown]
  - Obstructive airways disorder [Fatal]
  - Inappropriate schedule of drug administration [Unknown]
  - Toxicity to various agents [Fatal]
  - Accidental overdose [Unknown]
  - Drug dispensing error [Unknown]

NARRATIVE: CASE EVENT DATE: 201407
